FAERS Safety Report 24148078 (Version 1)
Quarter: 2024Q3

REPORT INFORMATION
  Report Type: Spontaneous
  Country: US (occurrence: None)
  Receive Date: 20240729
  Receipt Date: 20240729
  Transmission Date: 20241017
  Serious: Yes (Other)
  Sender: Public
  Company Number: None

PATIENT
  Age: 55 Year
  Sex: Male

DRUGS (1)
  1. HUMIRA [Suspect]
     Active Substance: ADALIMUMAB
     Indication: Psoriatic arthropathy
     Dosage: FREQUENCY : WEEKLY;?

REACTIONS (10)
  - Pneumonia [None]
  - Therapy interrupted [None]
  - Arthropod bite [None]
  - Impaired healing [None]
  - Swelling [None]
  - Cognitive disorder [None]
  - Brain fog [None]
  - Musculoskeletal stiffness [None]
  - Pain in extremity [None]
  - Muscle spasms [None]
